FAERS Safety Report 9657060 (Version 3)
Quarter: 2013Q4

REPORT INFORMATION
  Report Type: Spontaneous
  Country: US (occurrence: US)
  Receive Date: 20131030
  Receipt Date: 20131114
  Transmission Date: 20140711
  Serious: Yes (Hospitalization)
  Sender: FDA-Public Use
  Company Number: US-OPTIMER-20130397

PATIENT
  Age: 67 Year
  Sex: Female

DRUGS (12)
  1. DIFICID [Suspect]
     Indication: CLOSTRIDIUM DIFFICILE COLITIS
     Dosage: 200 MG, BID
     Route: 048
     Dates: start: 201308
  2. DIFICID [Suspect]
     Dosage: 200 MG, BID
     Route: 048
     Dates: start: 201310
  3. BUPROPION [Concomitant]
     Dosage: UNK
  4. CLONAZEPAM [Concomitant]
     Dosage: UNK
  5. COUMADIN [Concomitant]
     Dosage: UNK
  6. CREON [Concomitant]
     Dosage: UNK
  7. MORPHINE [Concomitant]
     Dosage: UNK
  8. ZOFRAN [Concomitant]
     Dosage: UNK
  9. VALSARTAN [Concomitant]
     Dosage: UNK
  10. AUGMENTIN [Concomitant]
     Indication: ABSCESS LIMB
     Dosage: UNK
     Dates: start: 20130924
  11. VANCOMYCIN [Concomitant]
     Indication: CLOSTRIDIUM DIFFICILE COLITIS
     Dosage: UNK
     Dates: start: 201307
  12. HYDROCHLOROTHIAZIDE [Concomitant]
     Dosage: UNK

REACTIONS (7)
  - Fall [Unknown]
  - Abscess limb [Unknown]
  - Dehydration [Not Recovered/Not Resolved]
  - Muscle spasms [Not Recovered/Not Resolved]
  - Diarrhoea [Not Recovered/Not Resolved]
  - Clostridium difficile infection [Recovered/Resolved]
  - Disease recurrence [Recovered/Resolved]
